FAERS Safety Report 7378924-5 (Version None)
Quarter: 2011Q1

REPORT INFORMATION
  Report Type: 
  Country: None (occurrence: None)
  Receive Date: 20110328
  Receipt Date: 20110314
  Transmission Date: 20110831
  Serious: Yes (Other)
  Sender: FDA-Public Use
  Company Number: PHHY2011GB20407

PATIENT
  Age: 51 Year
  Sex: Female
  Weight: 22.676 kg

DRUGS (3)
  1. TACROLIMUS [Suspect]
     Dosage: UNK
     Dates: start: 20070907
  2. EPREX [Suspect]
     Indication: NEPHROGENIC ANAEMIA
     Dosage: 2000 IU, QW3
  3. MYCOPHENOLATE MOFETIL [Suspect]
     Dosage: UNK
     Dates: start: 20071112, end: 20110113

REACTIONS (4)
  - ERYTHROPOIESIS ABNORMAL [None]
  - ANTI-ERYTHROPOIETIN ANTIBODY POSITIVE [None]
  - DRUG INEFFECTIVE [None]
  - APLASIA PURE RED CELL [None]
